FAERS Safety Report 6594449-9 (Version None)
Quarter: 2010Q1

REPORT INFORMATION
  Report Type: 
  Country: None (occurrence: None)
  Receive Date: 20100222
  Receipt Date: 20100212
  Transmission Date: 20100710
  Serious: Yes (Other)
  Sender: FDA-Public Use
  Company Number: GB-SANOFI-AVENTIS-A01200902193

PATIENT
  Sex: Male
  Weight: 87 kg

DRUGS (7)
  1. ZOLPIDEM TARTRATE [Suspect]
     Indication: INSOMNIA
     Dosage: UP TO 100 MG
     Route: 048
     Dates: start: 20031201
  2. ZOLPIDEM TARTRATE [Suspect]
     Route: 048
  3. ZOLPIDEM TARTRATE [Suspect]
     Route: 048
  4. VALIUM [Suspect]
     Indication: DRUG USE FOR UNKNOWN INDICATION
     Route: 065
  5. CANNABIS SATIVA [Suspect]
     Indication: DRUG USE FOR UNKNOWN INDICATION
     Route: 065
  6. ATENOLOL [Concomitant]
     Indication: PALPITATIONS
     Route: 048
     Dates: start: 20030201
  7. CLOMIPRAMINE HCL [Concomitant]
     Indication: DEPRESSION
     Route: 048
     Dates: start: 20060901

REACTIONS (6)
  - CHRONIC FATIGUE SYNDROME [None]
  - DISSOCIATIVE DISORDER [None]
  - DRUG ABUSE [None]
  - DRUG DEPENDENCE [None]
  - PHOTOPSIA [None]
  - VERTIGO [None]
